FAERS Safety Report 8961737 (Version 1)
Quarter: 2012Q4

REPORT INFORMATION
  Report Type: 
  Country: JP (occurrence: JP)
  Receive Date: 20121213
  Receipt Date: 20121213
  Transmission Date: 20130627
  Serious: Yes (Hospitalization)
  Sender: FDA-Public Use
  Company Number: JP-PFIZER INC-2012308482

PATIENT
  Age: 37 Year
  Sex: Male

DRUGS (14)
  1. MYCOBUTIN [Suspect]
     Indication: MYCOBACTERIUM AVIUM COMPLEX INFECTION
     Dosage: 300 mg daily
     Route: 048
     Dates: start: 20120502
  2. VALIXA [Suspect]
     Indication: CYTOMEGALOVIRUS RETINITIS
     Dosage: 900 mg, 1x/day
     Route: 048
     Dates: start: 20120530, end: 20120711
  3. VALIXA [Suspect]
     Dosage: 450 mg, 1x/day
     Route: 048
     Dates: start: 20120731, end: 20121031
  4. CLARITH [Concomitant]
     Dosage: 800 mg daily
     Dates: start: 20120502
  5. EBUTOL [Concomitant]
     Dosage: 750 mg daily
     Dates: start: 20120502, end: 20120711
  6. EPZICOM [Concomitant]
     Dosage: 1 DF daily
     Route: 048
     Dates: start: 20120715
  7. PREZISTA [Concomitant]
     Dosage: 800 mg daily
     Dates: start: 20120715
  8. NORVIR [Concomitant]
     Dosage: 100 mg daily
     Dates: start: 20120715
  9. DAIPHEN [Concomitant]
     Dosage: 1 DF dailly
     Route: 048
     Dates: end: 20120711
  10. HIRNAMIN [Concomitant]
     Dosage: 10 mg daily
  11. ALOSITOL [Concomitant]
     Dosage: 200 mg daily
     Route: 048
  12. MYSLEE [Concomitant]
     Dosage: 5 mg daily
  13. DENOSINE ^TANABE^ [Concomitant]
     Indication: CYTOMEGALOVIRUS RETINITIS
     Route: 041
  14. DENOSINE ^TANABE^ [Concomitant]
     Dosage: 300 mg, 2x/day
     Route: 041

REACTIONS (4)
  - Bone marrow failure [Recovering/Resolving]
  - Anaemia [Recovering/Resolving]
  - White blood cell count decreased [Recovering/Resolving]
  - Platelet count decreased [Recovered/Resolved]
